FAERS Safety Report 9098472 (Version 2)
Quarter: 2013Q1

REPORT INFORMATION
  Report Type: Spontaneous
  Country: CH (occurrence: CH)
  Receive Date: 20130213
  Receipt Date: 20130225
  Transmission Date: 20140127
  Serious: Yes (Hospitalization)
  Sender: FDA-Public Use
  Company Number: PHHY2013CH013346

PATIENT
  Sex: Female

DRUGS (6)
  1. MIACALCIC NASAL [Suspect]
     Indication: OSTEOPOROSIS
     Dosage: 2 DF
     Route: 045
     Dates: start: 20121004, end: 20121218
  2. METO ZEROK [Concomitant]
     Dosage: 50 UKN
  3. PANPRAX [Concomitant]
     Dosage: 20 UKN
  4. PLAVIX [Concomitant]
  5. TAMBOCOR [Concomitant]
     Dates: start: 201207
  6. BELOC ZOK [Concomitant]
     Dosage: UNK UKN, UNK

REACTIONS (5)
  - Atrial fibrillation [Unknown]
  - Palpitations [Unknown]
  - Atrial tachycardia [Unknown]
  - Arrhythmia supraventricular [Unknown]
  - Overdose [Unknown]
